FAERS Safety Report 11058527 (Version 1)
Quarter: 2015Q2

REPORT INFORMATION
  Report Type: Spontaneous
  Country: US (occurrence: None)
  Receive Date: 20150420
  Receipt Date: 20150420
  Transmission Date: 20150821
  Serious: No
  Sender: FDA-Public Use
  Company Number: AEGR001201

PATIENT
  Age: 71 Year
  Sex: Female
  Weight: 79.8 kg

DRUGS (11)
  1. JUXTAPID [Suspect]
     Active Substance: LOMITAPIDE MESYLATE
     Indication: TYPE IIA HYPERLIPIDAEMIA
     Route: 048
     Dates: start: 20150218
  2. PLAVIX (CLOPIDOGREL BISULFATE) [Concomitant]
  3. GABAPENTIN. [Concomitant]
     Active Substance: GABAPENTIN
  4. ASPIRIN (ACETYLSALICYLIC ACID) [Concomitant]
     Active Substance: ASPIRIN
  5. ZETIA [Concomitant]
     Active Substance: EZETIMIBE
  6. PREMARIN [Concomitant]
     Active Substance: ESTROGENS, CONJUGATED
  7. NITROSTAT (GLYCERYL TRINITRATE) [Concomitant]
  8. VALSARTAN/HYDROCHLOROTHIAZIDE (HYDROCHLOROTHIAZIDE, VALSARTAN) [Concomitant]
  9. TESSALON (BENZONATATE) [Concomitant]
  10. AMIODARONE (AMIODARONE HYDROCHLORIDE) [Concomitant]
  11. TRAMADOL (TRAMADOL HYDROCHLORIDE) [Concomitant]
     Active Substance: TRAMADOL HYDROCHLORIDE

REACTIONS (3)
  - Vomiting [None]
  - Nausea [None]
  - Muscle spasms [None]

NARRATIVE: CASE EVENT DATE: 20150218
